FAERS Safety Report 8289195-X (Version None)
Quarter: 2012Q2

REPORT INFORMATION
  Report Type: 
  Country: None (occurrence: None)
  Receive Date: 20120417
  Receipt Date: 20120411
  Transmission Date: 20120825
  Serious: Yes (Other)
  Sender: FDA-Public Use
  Company Number: PHHY2011FR89734

PATIENT
  Sex: Female

DRUGS (2)
  1. OXCARBAZEPINE [Suspect]
  2. OMEPRAZOLE [Suspect]

REACTIONS (6)
  - HYPONATRAEMIA [None]
  - CONVULSION [None]
  - HYPOVOLAEMIA [None]
  - BLOOD OSMOLARITY DECREASED [None]
  - SOMNOLENCE [None]
  - FALL [None]
